FAERS Safety Report 13629861 (Version 1)
Quarter: 2017Q2

REPORT INFORMATION
  Report Type: Spontaneous
  Country: CA (occurrence: CA)
  Receive Date: 20170608
  Receipt Date: 20170608
  Transmission Date: 20170830
  Serious: Yes (Hospitalization, Other)
  Sender: FDA-Public Use
  Company Number: CA-ALLERGAN-1723254US

PATIENT
  Age: 42 Year
  Sex: Male

DRUGS (2)
  1. ASACOL [Suspect]
     Active Substance: MESALAMINE
     Indication: CROHN^S DISEASE
     Dosage: 6 TABS, QD
  2. PREDNISOLONE. [Suspect]
     Active Substance: PREDNISOLONE
     Indication: CROHN^S DISEASE
     Dosage: 40 MG, QD

REACTIONS (4)
  - Drug ineffective [Unknown]
  - Abdominal pain [Unknown]
  - Diarrhoea haemorrhagic [Recovering/Resolving]
  - Crohn^s disease [Recovering/Resolving]
